FAERS Safety Report 9267117 (Version 2)
Quarter: 2013Q2

REPORT INFORMATION
  Report Type: Spontaneous
  Country: US (occurrence: US)
  Receive Date: 20130502
  Receipt Date: 20130509
  Transmission Date: 20140414
  Serious: No
  Sender: FDA-Public Use
  Company Number: US-PFIZER INC-2013132827

PATIENT
  Age: 8 None
  Sex: Male

DRUGS (1)
  1. LIPITOR [Suspect]
     Dosage: 5 MG, (10 MG TABLET CUT IN HALF)
     Route: 048

REACTIONS (7)
  - Blood pressure abnormal [Unknown]
  - Dizziness [Unknown]
  - Fatigue [Unknown]
  - Coordination abnormal [Unknown]
  - Asthenia [Unknown]
  - Drug hypersensitivity [Unknown]
  - Disorientation [Unknown]
